FAERS Safety Report 6642491-1 (Version None)
Quarter: 2010Q1

REPORT INFORMATION
  Report Type: 
  Country: None (occurrence: None)
  Receive Date: 20100316
  Receipt Date: 20100303
  Transmission Date: 20100710
  Serious: Yes (Other)
  Sender: FDA-Public Use
  Company Number: 2010AL001350

PATIENT
  Sex: Female

DRUGS (1)
  1. RANITIDINE SYRUP (RANITIDINE ORAL SOLUTION USP), 15 MG/ML (MALLIC) (RA [Suspect]
     Indication: PROPHYLAXIS
     Dosage: 150 MG;X1;

REACTIONS (8)
  - ABDOMINAL PAIN UPPER [None]
  - ANAPHYLACTOID REACTION [None]
  - CHEST PAIN [None]
  - CIRCULATORY COLLAPSE [None]
  - COLD SWEAT [None]
  - HYPERHIDROSIS [None]
  - HYPOTENSION [None]
  - NASOPHARYNGITIS [None]
